FAERS Safety Report 25145501 (Version 1)
Quarter: 2025Q2

REPORT INFORMATION
  Report Type: Spontaneous
  Country: US (occurrence: US)
  Receive Date: 20250401
  Receipt Date: 20250401
  Transmission Date: 20250716
  Serious: Yes (Life-Threatening, Other)
  Sender: PFIZER
  Company Number: US-PFIZER INC-PV202500036781

PATIENT
  Age: 79 Year
  Sex: Male

DRUGS (7)
  1. RITUXIMAB [Suspect]
     Active Substance: RITUXIMAB
     Indication: Acquired haemophilia
  2. RITUXIMAB [Suspect]
     Active Substance: RITUXIMAB
  3. ANTIHEMOPHILIC FACTOR HUMAN [Concomitant]
     Active Substance: ANTIHEMOPHILIC FACTOR HUMAN
     Indication: Acquired haemophilia
  4. ANTIHEMOPHILIC FACTOR HUMAN [Concomitant]
     Active Substance: ANTIHEMOPHILIC FACTOR HUMAN
  5. ANTIHEMOPHILIC FACTOR HUMAN [Concomitant]
     Active Substance: ANTIHEMOPHILIC FACTOR HUMAN
  6. EMICIZUMAB [Concomitant]
     Active Substance: EMICIZUMAB
     Indication: Haemorrhage prophylaxis
     Dosage: 3 MG/KG, WEEKLY (THE LOADING REGIMEN IN USE AT THAT TIME)
  7. EMICIZUMAB [Concomitant]
     Active Substance: EMICIZUMAB
     Indication: Acquired haemophilia
     Dosage: 1.5 MG/KG, WEEKLY

REACTIONS (2)
  - Toxicity to various agents [Unknown]
  - Off label use [Unknown]
